FAERS Safety Report 6358352-1 (Version None)
Quarter: 2009Q3

REPORT INFORMATION
  Report Type: 
  Country: None (occurrence: None)
  Receive Date: 20090916
  Receipt Date: 20090910
  Transmission Date: 20100115
  Serious: Yes (Hospitalization, Other)
  Sender: FDA-Public Use
  Company Number: PHHO2004GB14860

PATIENT
  Sex: Female
  Weight: 70 kg

DRUGS (6)
  1. ZOLEDRONIC ACID [Suspect]
     Indication: METASTASES TO BONE
     Dosage: 4 MG
     Route: 042
     Dates: start: 20040126
  2. CYCLOPHOSPHAMIDE [Concomitant]
     Indication: BREAST CANCER
     Dosage: 600 MG, TIW
     Route: 042
     Dates: start: 20040126, end: 20040525
  3. EPIRUBICIN [Concomitant]
     Indication: BREAST CANCER
     Dosage: 75 MG/M2, TIW
     Route: 042
     Dates: start: 20040126, end: 20040525
  4. FLUOROURACIL [Concomitant]
     Indication: BREAST CANCER
     Dosage: 600 MG/M2, TIW
     Route: 042
     Dates: start: 20040126, end: 20040525
  5. DEXAMETHASONE [Concomitant]
  6. LEVOTHYROXINE SODIUM [Concomitant]

REACTIONS (10)
  - ACTINOMYCOSIS [None]
  - EXCESSIVE GRANULATION TISSUE [None]
  - GINGIVAL INFECTION [None]
  - IMPAIRED HEALING [None]
  - OSTEOMYELITIS ACUTE [None]
  - OSTEONECROSIS [None]
  - PAIN IN JAW [None]
  - SECONDARY SEQUESTRUM [None]
  - SURGERY [None]
  - TOOTH EXTRACTION [None]
